FAERS Safety Report 9878097 (Version 2)
Quarter: 2014Q1

REPORT INFORMATION
  Report Type: Spontaneous
  Country: US (occurrence: US)
  Receive Date: 20140206
  Receipt Date: 20140206
  Transmission Date: 20141002
  Serious: Yes (Hospitalization)
  Sender: FDA-Public Use
  Company Number: US-BAXTER-2014BAX004351

PATIENT
  Age: 50 Year
  Sex: Female

DRUGS (4)
  1. DIANEAL PD2 [Suspect]
     Indication: PERITONEAL DIALYSIS
     Route: 033
     Dates: start: 200908
  2. DIANEAL PD2 [Suspect]
     Dosage: LAST FILL
     Route: 033
     Dates: start: 200908
  3. DIANEAL PD2 [Suspect]
     Indication: PERITONEAL DIALYSIS
     Route: 033
     Dates: start: 200908
  4. DIANEAL PD2 [Suspect]
     Dosage: LAST FILL
     Route: 033
     Dates: start: 200908

REACTIONS (2)
  - Pleural effusion [Not Recovered/Not Resolved]
  - Blood albumin decreased [Not Recovered/Not Resolved]
